FAERS Safety Report 19226130 (Version 3)
Quarter: 2021Q3

REPORT INFORMATION
  Report Type: Report from Study
  Country: GB (occurrence: GB)
  Receive Date: 20210506
  Receipt Date: 20210723
  Transmission Date: 20211014
  Serious: Yes (Other)
  Sender: FDA-Public Use
  Company Number: NVSC2021GB099390

PATIENT
  Sex: Male

DRUGS (3)
  1. HYRIMOZ [Suspect]
     Active Substance: ADALIMUMAB-ADAZ
     Dosage: 80 MG (WEEK?2) (FORTNIGHTLY)
     Route: 058
  2. HYRIMOZ [Suspect]
     Active Substance: ADALIMUMAB-ADAZ
     Indication: COLITIS ULCERATIVE
     Dosage: 160 MG (WEEK?0) (FORTNIGHTLY)
     Route: 058
     Dates: start: 20210414
  3. HYRIMOZ [Suspect]
     Active Substance: ADALIMUMAB-ADAZ
     Dosage: 40 MG (WEEK?4) (FORTNIGHTLY)
     Route: 058

REACTIONS (4)
  - Deep vein thrombosis [Unknown]
  - Groin pain [Unknown]
  - Swelling [Unknown]
  - Drug ineffective [Unknown]
